FAERS Safety Report 20872297 (Version 2)
Quarter: 2022Q3

REPORT INFORMATION
  Report Type: Spontaneous
  Country: US (occurrence: US)
  Receive Date: 20220525
  Receipt Date: 20220721
  Transmission Date: 20221027
  Serious: No
  Sender: FDA-Public Use
  Company Number: US-BoehringerIngelheim-2022-BI-172674

PATIENT
  Sex: Male

DRUGS (1)
  1. SPIRIVA HANDIHALER [Suspect]
     Active Substance: TIOTROPIUM BROMIDE MONOHYDRATE
     Indication: Idiopathic pulmonary fibrosis
     Dosage: TWO INHALATIONS
     Dates: start: 202204

REACTIONS (2)
  - Incorrect route of product administration [Unknown]
  - Off label use [Unknown]
